FAERS Safety Report 9596847 (Version 1)
Quarter: 2013Q4

REPORT INFORMATION
  Report Type: Spontaneous
  Country: FR (occurrence: FR)
  Receive Date: 20131004
  Receipt Date: 20131004
  Transmission Date: 20140711
  Serious: Yes (Other)
  Sender: FDA-Public Use
  Company Number: PHHY2013FR109392

PATIENT
  Sex: Male

DRUGS (1)
  1. ATORVASTATIN [Suspect]

REACTIONS (1)
  - Breast enlargement [Unknown]
